FAERS Safety Report 21255585 (Version 8)
Quarter: 2022Q4

REPORT INFORMATION
  Report Type: Report from Study
  Country: US (occurrence: US)
  Receive Date: 20220825
  Receipt Date: 20221117
  Transmission Date: 20230113
  Serious: No
  Sender: FDA-Public Use
  Company Number: US-NOVARTISTESTPH-NVSC2022US190819

PATIENT
  Sex: Male

DRUGS (1)
  1. COSENTYX [Suspect]
     Active Substance: SECUKINUMAB
     Indication: Psoriasis
     Dosage: UNK
     Route: 058

REACTIONS (6)
  - Therapeutic response unexpected [Unknown]
  - Glycosylated haemoglobin increased [Recovering/Resolving]
  - Skin lesion [Unknown]
  - Erythema [Unknown]
  - Skin plaque [Unknown]
  - Drug ineffective [Unknown]
